FAERS Safety Report 17996084 (Version 1)
Quarter: 2020Q3

REPORT INFORMATION
  Report Type: Spontaneous
  Country: NL (occurrence: DK)
  Receive Date: 20200708
  Receipt Date: 20200708
  Transmission Date: 20201103
  Serious: Yes (Hospitalization)
  Sender: FDA-Public Use
  Company Number: DK-FRESENIUS KABI-FK202006736

PATIENT
  Age: 75 Year
  Sex: Female

DRUGS (2)
  1. ZOLEDRONIC ACID [Suspect]
     Active Substance: ZOLEDRONIC ACID
     Indication: BONE DISORDER
     Dosage: STRENGTH:4 MG/5ML.
     Route: 042
     Dates: start: 20200520
  2. ESTRADIOL. [Concomitant]
     Active Substance: ESTRADIOL
     Indication: HORMONE THERAPY
     Dosage: STRENGTH: 10 MICROGRAM
     Route: 067
     Dates: start: 20150513

REACTIONS (6)
  - Dysstasia [Unknown]
  - Back pain [Not Recovered/Not Resolved]
  - Influenza [Recovered/Resolved]
  - Renal pain [Recovered/Resolved]
  - Arthralgia [Not Recovered/Not Resolved]
  - Gait disturbance [Unknown]

NARRATIVE: CASE EVENT DATE: 20200520
